FAERS Safety Report 24605690 (Version 2)
Quarter: 2024Q4

REPORT INFORMATION
  Report Type: Spontaneous
  Country: DE (occurrence: DE)
  Receive Date: 20241111
  Receipt Date: 20241115
  Transmission Date: 20250115
  Serious: Yes (Hospitalization)
  Sender: LUNDBECK
  Company Number: DE-LUNDBECK-DKLU4004597

PATIENT

DRUGS (7)
  1. VYEPTI [Suspect]
     Active Substance: EPTINEZUMAB-JJMR
     Indication: Migraine with aura
     Dosage: 100 MILLIGRAM
     Route: 041
     Dates: start: 20240312
  2. VYEPTI [Suspect]
     Active Substance: EPTINEZUMAB-JJMR
     Dosage: 300 MILLIGRAM
     Route: 041
     Dates: start: 202406
  3. ASPIRIN [Concomitant]
     Active Substance: ASPIRIN
     Indication: Migraine with aura
     Dosage: 100 MILLIGRAM
     Dates: start: 2018
  4. NEBIVOLOL [Concomitant]
     Active Substance: NEBIVOLOL
     Indication: Migraine with aura
     Dosage: 1.25 MILLIGRAM
     Dates: start: 2018
  5. ALVESCO [Concomitant]
     Active Substance: CICLESONIDE
     Indication: Asthma
     Dates: start: 2009
  6. ALBUTEROL [Concomitant]
     Active Substance: ALBUTEROL
     Indication: Asthma
     Dates: start: 2009
  7. ALLOPURINOL [Concomitant]
     Active Substance: ALLOPURINOL
     Indication: Hyperuricaemia
     Dosage: 150 MILLIGRAM
     Dates: start: 1990

REACTIONS (11)
  - Paraesthesia [Unknown]
  - Paraesthesia oral [Unknown]
  - Dizziness [Unknown]
  - Cardiovascular disorder [Unknown]
  - Vision blurred [Unknown]
  - Headache [Recovered/Resolved]
  - Dyspnoea [Unknown]
  - Asthma [Unknown]
  - Parosmia [Not Recovered/Not Resolved]
  - Therapeutic response shortened [Unknown]
  - Drug ineffective [Unknown]
